FAERS Safety Report 9601234 (Version 1)
Quarter: 2013Q4

REPORT INFORMATION
  Report Type: Spontaneous
  Country: SE (occurrence: SE)
  Receive Date: 20131005
  Receipt Date: 20131005
  Transmission Date: 20140711
  Serious: Yes (Hospitalization)
  Sender: FDA-Public Use
  Company Number: SE-TEVA-434928ISR

PATIENT
  Age: 72 Year
  Sex: Male

DRUGS (8)
  1. DOXYFERM [Suspect]
     Indication: ARTHRITIS REACTIVE
     Dosage: 200 MILLIGRAM DAILY;
     Route: 048
     Dates: start: 20130816, end: 20130816
  2. OMEPRAZOL SANDOZ [Concomitant]
     Route: 048
  3. LOSARTAN AGP [Concomitant]
     Route: 065
  4. AMLODIPIN ACCORD [Concomitant]
  5. LASIX RETARD [Concomitant]
     Route: 065
  6. TENORMIN [Concomitant]
     Route: 065
  7. LOPID [Concomitant]
     Route: 065
  8. TROMBYL [Concomitant]
     Route: 065

REACTIONS (1)
  - Pancreatitis [Recovered/Resolved with Sequelae]
